APPROVED DRUG PRODUCT: PROMETHAZINE HYDROCHLORIDE AND DEXTROMETHORPHAN HYDROBROMIDE
Active Ingredient: DEXTROMETHORPHAN HYDROBROMIDE; PROMETHAZINE HYDROCHLORIDE
Strength: 15MG/5ML;6.25MG/5ML
Dosage Form/Route: SYRUP;ORAL
Application: A091687 | Product #001 | TE Code: AA
Applicant: COSETTE PHARMACEUTICALS INC
Approved: Jun 28, 2012 | RLD: No | RS: No | Type: RX